FAERS Safety Report 20085127 (Version 4)
Quarter: 2021Q4

REPORT INFORMATION
  Report Type: Spontaneous
  Country: BR (occurrence: BR)
  Receive Date: 20211118
  Receipt Date: 20211123
  Transmission Date: 20220303
  Serious: Yes (Death, Hospitalization)
  Sender: FDA-Public Use
  Company Number: BR-JNJFOC-20211127486

PATIENT
  Age: 4 Year
  Sex: Male

DRUGS (2)
  1. TYLENOL [Suspect]
     Active Substance: ACETAMINOPHEN
     Indication: Toothache
     Route: 048
     Dates: start: 20211102, end: 20211102
  2. METAMIZOLE SODIUM [Suspect]
     Active Substance: METAMIZOLE SODIUM
     Indication: Product used for unknown indication
     Route: 065

REACTIONS (6)
  - Wrong technique in product usage process [Fatal]
  - Choking [Fatal]
  - Renal failure [Fatal]
  - Cardio-respiratory arrest [Fatal]
  - Drug hypersensitivity [Fatal]
  - Product use issue [Fatal]

NARRATIVE: CASE EVENT DATE: 20211102
